FAERS Safety Report 4528981-6 (Version None)
Quarter: 2004Q4

REPORT INFORMATION
  Report Type: 
  Country: None (occurrence: None)
  Receive Date: 20041215
  Receipt Date: 20041215
  Transmission Date: 20050328
  Serious: Yes (Life-Threatening, Hospitalization)
  Sender: FDA-Public Use
  Company Number: None

PATIENT
  Age: 60 Year
  Sex: Female
  Weight: 86.1834 kg

DRUGS (2)
  1. VIOXX [Suspect]
     Indication: ARTHRITIS
     Dosage: 1 PR DAY
     Dates: start: 20020901
  2. BEXTRA [Suspect]
     Indication: ARTHRITIS
     Dosage: 1 PR. DAY
     Dates: start: 20030501

REACTIONS (7)
  - ASTHENIA [None]
  - DYSPEPSIA [None]
  - FATIGUE [None]
  - GASTROINTESTINAL DISORDER [None]
  - JOINT SWELLING [None]
  - PNEUMONIA [None]
  - RESPIRATORY DISORDER [None]
